FAERS Safety Report 11460370 (Version 2)
Quarter: 2015Q4

REPORT INFORMATION
  Report Type: Spontaneous
  Country: US (occurrence: US)
  Receive Date: 20150904
  Receipt Date: 20151103
  Transmission Date: 20160304
  Serious: Yes (Death, Hospitalization, Other)
  Sender: FDA-Public Use
  Company Number: US-INCYTE CORPORATION-2015IN004412

PATIENT
  Age: 82 Year
  Sex: Male
  Weight: 102.4 kg

DRUGS (14)
  1. LASIX [Concomitant]
     Active Substance: FUROSEMIDE
  2. METAXALONE. [Concomitant]
     Active Substance: METAXALONE
  3. VITAMIN B6 [Concomitant]
     Active Substance: PYRIDOXINE HYDROCHLORIDE
  4. NYSTATIN. [Concomitant]
     Active Substance: NYSTATIN
  5. JALYN [Concomitant]
     Active Substance: DUTASTERIDE\TAMSULOSIN HYDROCHLORIDE
  6. VITAMIN D                          /00107901/ [Concomitant]
     Active Substance: ERGOCALCIFEROL
  7. DULOXETINE. [Concomitant]
     Active Substance: DULOXETINE
  8. LISINOPRIL. [Concomitant]
     Active Substance: LISINOPRIL
  9. VITAMIN B12 [Concomitant]
     Active Substance: CYANOCOBALAMIN
  10. JAKAFI [Suspect]
     Active Substance: RUXOLITINIB
     Indication: MYELOFIBROSIS
     Dosage: 10 MG, BID (MORNING AND NOON)
     Route: 048
     Dates: start: 2013, end: 20150730
  11. PREDNISONE. [Concomitant]
     Active Substance: PREDNISONE
  12. JAKAFI [Suspect]
     Active Substance: RUXOLITINIB
     Dosage: 10 MG, BID
     Route: 048
     Dates: start: 20140707
  13. GLIPIZIDE. [Concomitant]
     Active Substance: GLIPIZIDE
  14. TRAZODONE [Concomitant]
     Active Substance: TRAZODONE HYDROCHLORIDE

REACTIONS (18)
  - Aortic stenosis [Fatal]
  - Syncope [Unknown]
  - Pulmonary oedema [Unknown]
  - Insomnia [Unknown]
  - Abdominal distension [Unknown]
  - Rash erythematous [Unknown]
  - Restlessness [Unknown]
  - Oedema peripheral [Unknown]
  - White blood cell count increased [Unknown]
  - Contusion [Unknown]
  - Thrombocytopenia [Unknown]
  - Cough [Unknown]
  - Blood glucose increased [Unknown]
  - Pleural effusion [Unknown]
  - Cardiac failure congestive [Fatal]
  - Dyspnoea [Unknown]
  - Fall [Recovered/Resolved]
  - Ecchymosis [Unknown]

NARRATIVE: CASE EVENT DATE: 201506
